FAERS Safety Report 8920875 (Version 1)
Quarter: 2012Q4

REPORT INFORMATION
  Report Type: 
  Country: US (occurrence: US)
  Receive Date: 20121121
  Receipt Date: 20121121
  Transmission Date: 20130627
  Serious: Yes (Hospitalization)
  Sender: FDA-Public Use
  Company Number: US-GLAXOSMITHKLINE-A0899078A

PATIENT
  Age: 49 Year
  Sex: Male

DRUGS (3)
  1. AVANDIA [Suspect]
     Indication: DIABETES MELLITUS
     Dosage: 2MG Unknown
     Route: 048
     Dates: start: 20040805, end: 20041103
  2. SIMVASTATIN [Concomitant]
  3. GEMFIBROZIL [Concomitant]

REACTIONS (3)
  - Cardiac failure congestive [Not Recovered/Not Resolved]
  - Musculoskeletal disorder [Unknown]
  - Acute myocardial infarction [Unknown]
